FAERS Safety Report 13976354 (Version 2)
Quarter: 2017Q4

REPORT INFORMATION
  Report Type: Spontaneous
  Country: US (occurrence: US)
  Receive Date: 20170915
  Receipt Date: 20171211
  Transmission Date: 20180321
  Serious: Yes (Other)
  Sender: FDA-Public Use
  Company Number: US-BRISTOL-MYERS SQUIBB COMPANY-BMS-2017-080623

PATIENT
  Sex: Male
  Weight: 67.57 kg

DRUGS (1)
  1. YERVOY [Suspect]
     Active Substance: IPILIMUMAB
     Indication: MALIGNANT MELANOMA
     Dosage: 730 MG, Q3WK
     Route: 042
     Dates: start: 20161202

REACTIONS (3)
  - Lung infection [Unknown]
  - Pneumonia [Unknown]
  - Eye irritation [Unknown]
